FAERS Safety Report 24961324 (Version 1)
Quarter: 2025Q1

REPORT INFORMATION
  Report Type: Spontaneous
  Country: CA (occurrence: CA)
  Receive Date: 20250212
  Receipt Date: 20250212
  Transmission Date: 20250409
  Serious: Yes (Other)
  Sender: FRESENIUS KABI
  Company Number: CA-FreseniusKabi-FK202501991

PATIENT
  Age: 49 Year
  Sex: Male

DRUGS (1)
  1. IDACIO [Suspect]
     Active Substance: ADALIMUMAB-AACF
     Indication: Rheumatoid arthritis
     Dosage: FOA: SOLUTION
     Route: 058

REACTIONS (2)
  - Product substitution issue [Recovered/Resolved]
  - Rheumatoid arthritis [Recovered/Resolved]
